FAERS Safety Report 17158669 (Version 1)
Quarter: 2019Q4

REPORT INFORMATION
  Report Type: Spontaneous
  Country: GB (occurrence: GB)
  Receive Date: 20191216
  Receipt Date: 20191216
  Transmission Date: 20200122
  Serious: Yes (Death, Hospitalization)
  Sender: FDA-Public Use
  Company Number: NVSC2019GB065293

PATIENT
  Age: 62 Year
  Sex: Male

DRUGS (18)
  1. PREDNISOLONE. [Suspect]
     Active Substance: PREDNISOLONE
     Indication: PRODUCT USED FOR UNKNOWN INDICATION
     Dosage: 10 MG, QD (FROM 15 YEARS)
     Route: 065
  2. BENSYLPENICILLIN [Concomitant]
     Active Substance: PENICILLIN G
     Indication: CELLULITIS
     Dosage: 1.2 G, QID
     Route: 042
  3. GANCICLOVIR. [Concomitant]
     Active Substance: GANCICLOVIR
     Indication: DISSEMINATED CYTOMEGALOVIRAL INFECTION
     Dosage: 375 MG, BID
     Route: 042
  4. MEROPENEM. [Concomitant]
     Active Substance: MEROPENEM
     Indication: PRODUCT USED FOR UNKNOWN INDICATION
     Dosage: 1 G, TID
     Route: 065
  5. FLUCONAZOLE. [Concomitant]
     Active Substance: FLUCONAZOLE
     Indication: PRODUCT USED FOR UNKNOWN INDICATION
     Dosage: 400 MG, QD
     Route: 065
  6. AZATHIOPRINE. [Suspect]
     Active Substance: AZATHIOPRINE
     Indication: PRODUCT USED FOR UNKNOWN INDICATION
     Dosage: 150 MG, QD
     Route: 065
  7. FOSCARNET [Concomitant]
     Active Substance: FOSCARNET
     Indication: THROMBOCYTOPENIA
  8. ASACOL [Concomitant]
     Active Substance: MESALAMINE
     Indication: PRODUCT USED FOR UNKNOWN INDICATION
     Dosage: 2 MG, QD
     Route: 065
  9. TENOFOVIR [Concomitant]
     Active Substance: TENOFOVIR
     Indication: PRODUCT USED FOR UNKNOWN INDICATION
     Dosage: UNK
     Route: 065
  10. CIPROFLOXACINA [Concomitant]
     Active Substance: CIPROFLOXACIN
     Indication: ORCHITIS
     Dosage: 500 MG, BID
     Route: 048
  11. LINEZOLID. [Concomitant]
     Active Substance: LINEZOLID
     Indication: PRODUCT USED FOR UNKNOWN INDICATION
     Dosage: 600 MG, BID
     Route: 048
  12. AMIKACIN. [Concomitant]
     Active Substance: AMIKACIN
     Indication: PRODUCT USED FOR UNKNOWN INDICATION
     Dosage: 1.2 G, QD
     Route: 042
  13. ALLOPURINOL. [Concomitant]
     Active Substance: ALLOPURINOL
     Indication: PRODUCT USED FOR UNKNOWN INDICATION
     Dosage: 100 MG, QD
     Route: 065
  14. FLUCLOXACILLIN [Concomitant]
     Active Substance: FLUCLOXACILLIN
     Indication: CELLULITIS
     Dosage: 1 G, QID
     Route: 065
  15. FOSCARNET [Concomitant]
     Active Substance: FOSCARNET
     Indication: LEUKOPENIA
     Dosage: 4.5 G, TID
     Route: 065
  16. CLARITROMICINA [Concomitant]
     Active Substance: CLARITHROMYCIN
     Indication: CELLULITIS
     Dosage: 500 MG, BID
     Route: 048
  17. DOXYCYCLINE. [Concomitant]
     Active Substance: DOXYCYCLINE
     Indication: ORCHITIS
     Dosage: 100 MG, BID
     Route: 048
  18. CEFTRIAXONE. [Concomitant]
     Active Substance: CEFTRIAXONE
     Indication: PRODUCT USED FOR UNKNOWN INDICATION
     Dosage: 2 G, QD
     Route: 042

REACTIONS (9)
  - Sepsis [Unknown]
  - Cytomegalovirus infection [Fatal]
  - Weight decreased [Unknown]
  - Colitis [Unknown]
  - Histoplasmosis disseminated [Fatal]
  - Haemophagocytic lymphohistiocytosis [Fatal]
  - Erythema [Unknown]
  - Rash erythematous [Unknown]
  - Bone marrow failure [Unknown]
